FAERS Safety Report 18075701 (Version 1)
Quarter: 2020Q3

REPORT INFORMATION
  Report Type: Spontaneous
  Country: US (occurrence: US)
  Receive Date: 20200727
  Receipt Date: 20200727
  Transmission Date: 20201103
  Serious: No
  Sender: FDA-Public Use
  Company Number: US-ABBVIE-20K-163-3375290-00

PATIENT
  Age: 70 Year
  Sex: Female

DRUGS (1)
  1. SYNTHROID [Suspect]
     Active Substance: LEVOTHYROXINE SODIUM
     Indication: PRODUCT USED FOR UNKNOWN INDICATION
     Dosage: TAKING AT 4 AM, NO FOOD UNTIL 9, AND NO CALCIUM OR IRON WITHIN 4 HOURS OF THE DOSE EITHER
     Route: 048

REACTIONS (6)
  - Temperature intolerance [Unknown]
  - Thyroid hormones decreased [Not Recovered/Not Resolved]
  - Bone pain [Unknown]
  - Dry skin [Unknown]
  - Alopecia [Unknown]
  - Tremor [Unknown]

NARRATIVE: CASE EVENT DATE: 2018
